FAERS Safety Report 10061729 (Version 1)
Quarter: 2014Q2

REPORT INFORMATION
  Report Type: Spontaneous
  Country: US (occurrence: None)
  Receive Date: 20140404
  Receipt Date: 20140404
  Transmission Date: 20141212
  Serious: Yes (Other)
  Sender: FDA-Public Use
  Company Number: None

PATIENT
  Age: 25 Year
  Sex: Female
  Weight: 77.11 kg

DRUGS (1)
  1. IMPLANON [Suspect]

REACTIONS (4)
  - Depression [None]
  - Disturbance in attention [None]
  - Limb discomfort [None]
  - Mental disorder [None]
